FAERS Safety Report 8008886-9 (Version None)
Quarter: 2011Q4

REPORT INFORMATION
  Report Type: 
  Country: None (occurrence: None)
  Receive Date: 20111227
  Receipt Date: 20111216
  Transmission Date: 20120403
  Serious: Yes (Hospitalization)
  Sender: FDA-Public Use
  Company Number: NL-ASTRAZENECA-2011SE76383

PATIENT
  Sex: Female

DRUGS (1)
  1. ESOMEPRAZOLE MAGNESIUM/NAPROXEN [Suspect]
     Dosage: 500/20 MG
     Route: 048
     Dates: start: 20110926

REACTIONS (2)
  - GASTROINTESTINAL HAEMORRHAGE [None]
  - CEREBROVASCULAR ACCIDENT [None]
